FAERS Safety Report 8983102 (Version 2)
Quarter: 2013Q2

REPORT INFORMATION
  Report Type: Spontaneous
  Country: FR (occurrence: FR)
  Receive Date: 20121224
  Receipt Date: 20130423
  Transmission Date: 20140414
  Serious: Yes (Life-Threatening, Hospitalization)
  Sender: FDA-Public Use
  Company Number: PHHY2012FR118000

PATIENT
  Age: 54 Year
  Sex: Female
  Weight: 50 kg

DRUGS (7)
  1. GILENYA [Suspect]
     Indication: MULTIPLE SCLEROSIS
     Dosage: 0.5 MG, QD
     Route: 048
     Dates: start: 20121025, end: 20121209
  2. GILENYA [Suspect]
     Dosage: 0.5 MG, QD
     Route: 048
     Dates: start: 20121212
  3. DANTRIUM [Concomitant]
     Dosage: 50 MG, TID
  4. LIORESAL [Concomitant]
     Dosage: 20 MG, TID
  5. ZOLOFT [Concomitant]
     Dosage: 2 DF, QD
  6. PENTASA [Concomitant]
     Dosage: 1 DF, TID
  7. VESICARE [Concomitant]
     Dosage: 1 DF, QD

REACTIONS (4)
  - Cardiac arrest [Recovered/Resolved]
  - Hypokalaemia [Recovered/Resolved]
  - Faecaloma [Recovered/Resolved]
  - Hyperkalaemia [Recovered/Resolved]
